FAERS Safety Report 7985674-0 (Version None)
Quarter: 2011Q4

REPORT INFORMATION
  Report Type: 
  Country: None (occurrence: None)
  Receive Date: 20111216
  Receipt Date: 20111205
  Transmission Date: 20120403
  Serious: Yes (Hospitalization)
  Sender: FDA-Public Use
  Company Number: CH-JNJFOC-20111202341

PATIENT
  Age: 36 Year
  Sex: Male

DRUGS (1)
  1. SIMPONI [Suspect]
     Indication: SPONDYLITIS
     Route: 058
     Dates: start: 20101101, end: 20111101

REACTIONS (2)
  - THROMBOCYTOPENIA [None]
  - MENINGITIS ASEPTIC [None]
